FAERS Safety Report 4853665-4 (Version None)
Quarter: 2005Q4

REPORT INFORMATION
  Report Type: 
  Country: None (occurrence: None)
  Receive Date: 20051212
  Receipt Date: 20051121
  Transmission Date: 20060501
  Serious: No
  Sender: FDA-Public Use
  Company Number: NZ200511002962

PATIENT
  Age: 20 Year
  Sex: Male

DRUGS (3)
  1. ZYPREXA [Suspect]
     Indication: SCHIZOPHRENIA
     Dosage: 5 MG
     Dates: start: 20020801, end: 20031101
  2. ZYPREXA [Suspect]
     Indication: SCHIZOPHRENIA
     Dosage: 5 MG
     Dates: start: 20031201, end: 20050829
  3. PROZAC (FLUOXETINE HYDROCHLORIDE UNKNOWN FORMULATION) [Concomitant]

REACTIONS (3)
  - NEUTROPENIA [None]
  - PHARYNGITIS [None]
  - TONSILLITIS [None]
